FAERS Safety Report 15584807 (Version 1)
Quarter: 2018Q4

REPORT INFORMATION
  Report Type: Spontaneous
  Country: US (occurrence: US)
  Receive Date: 20181105
  Receipt Date: 20181105
  Transmission Date: 20190205
  Serious: No
  Sender: FDA-Public Use
  Company Number: None

PATIENT
  Age: 71 Year
  Sex: Female
  Weight: 81.45 kg

DRUGS (7)
  1. BENZONATATE 200MG CAPSULES [Suspect]
     Active Substance: BENZONATATE
     Indication: COUGH
     Dosage: ?          QUANTITY:1 CAPSULE(S);?
     Route: 048
     Dates: start: 20181031, end: 20181103
  2. METOPROLOL. [Concomitant]
     Active Substance: METOPROLOL
  3. LIOTHYRONINE [Concomitant]
     Active Substance: LIOTHYRONINE
  4. 81MG ASPIRIN [Concomitant]
  5. ADVIL [Concomitant]
     Active Substance: IBUPROFEN
  6. CLOPIDOGREL [Concomitant]
     Active Substance: CLOPIDOGREL BISULFATE
  7. LEVOTHYROXINE. [Concomitant]
     Active Substance: LEVOTHYROXINE

REACTIONS (9)
  - Diarrhoea [None]
  - Abdominal discomfort [None]
  - Swollen tongue [None]
  - Nasal congestion [None]
  - Cough [None]
  - Dysphonia [None]
  - Fatigue [None]
  - Headache [None]
  - Productive cough [None]

NARRATIVE: CASE EVENT DATE: 20181103
